FAERS Safety Report 24286682 (Version 1)
Quarter: 2024Q3

REPORT INFORMATION
  Report Type: Spontaneous
  Country: US (occurrence: None)
  Receive Date: 20240903
  Receipt Date: 20240903
  Transmission Date: 20241017
  Serious: Yes (Hospitalization)
  Sender: Public
  Company Number: None

PATIENT
  Age: 49 Year
  Sex: Female

DRUGS (1)
  1. KESIMPTA [Suspect]
     Active Substance: OFATUMUMAB
     Indication: Multiple sclerosis
     Dosage: FREQUENCY : MONTHLY;?
     Dates: start: 20230608

REACTIONS (7)
  - Clostridium difficile infection [None]
  - Urinary tract infection [None]
  - Device related infection [None]
  - Oesophageal infection [None]
  - Bacterial infection [None]
  - Hypotension [None]
  - Vomiting [None]
